FAERS Safety Report 13357628 (Version 1)
Quarter: 2017Q1

REPORT INFORMATION
  Report Type: Spontaneous
  Country: GB (occurrence: GB)
  Receive Date: 20170322
  Receipt Date: 20170322
  Transmission Date: 20170429
  Serious: Yes (Death, Life-Threatening, Hospitalization, Other)
  Sender: FDA-Public Use
  Company Number: GB-009507513-1703GBR009601

PATIENT
  Age: 77 Year
  Sex: Female

DRUGS (14)
  1. REVLIMID [Suspect]
     Active Substance: LENALIDOMIDE
     Indication: PLASMA CELL MYELOMA
     Dosage: CYCLE 2 PERIOD 1 (20 MG 1 IN 1 D)
     Route: 048
     Dates: start: 20170107, end: 20170123
  2. DALTEPARIN SODIUM [Concomitant]
     Active Substance: DALTEPARIN SODIUM
     Indication: ANTICOAGULANT THERAPY
     Dosage: 500 IU (500 IU,1IN1 D)
     Route: 058
     Dates: start: 20161209
  3. LISINOPRIL. [Concomitant]
     Active Substance: LISINOPRIL
     Dosage: 20 MG (20 MG,1 IN 1 D)
     Route: 048
  4. PROPRANOLOL HYDROCHLORIDE. [Concomitant]
     Active Substance: PROPRANOLOL HYDROCHLORIDE
     Dosage: 20 MG (10 MG, 2 IN 1 D)
     Route: 048
  5. OMEPRAZOLE. [Concomitant]
     Active Substance: OMEPRAZOLE
     Indication: PROPHYLAXIS
     Dosage: 20 MG (20 MG,1 IN 1 D)
     Route: 048
  6. DEXAMETHASONE. [Suspect]
     Active Substance: DEXAMETHASONE
     Indication: PLASMA CELL MYELOMA
     Dosage: AT CYCLE 1 DAY 8 ON 17-DEC-2016, CYCLE 1 DAY 15 ON 24-DEC-2016, CYCLE 1 DAY
     Route: 048
     Dates: start: 20161210, end: 20170124
  7. REVLIMID [Suspect]
     Active Substance: LENALIDOMIDE
     Dosage: CYCLE 1 PERIOD 1 (25 MG 1 IN 1 D)
     Route: 048
     Dates: start: 20161210
  8. ALLOPURINOL. [Concomitant]
     Active Substance: ALLOPURINOL
     Indication: RENAL APLASIA
     Dosage: 300 MG (300 MG, 1 IN 1D)
     Route: 048
  9. FLUCONAZOLE. [Concomitant]
     Active Substance: FLUCONAZOLE
     Indication: ANTIVIRAL PROPHYLAXIS
     Dosage: 50 MG, 1 IN 1 D
     Route: 048
     Dates: start: 20161209
  10. FUSIDIC ACID [Concomitant]
     Active Substance: FUSIDIC ACID
     Indication: SKIN LESION
     Dosage: UNKNOWN, 3 IN 1 D
     Route: 061
     Dates: start: 20161205
  11. ACYCLOVIR. [Concomitant]
     Active Substance: ACYCLOVIR
     Indication: ANTIVIRAL PROPHYLAXIS
     Dosage: 800 MG (400 MG, 2 IN 1 D)
     Route: 048
     Dates: start: 20161209
  12. GAVISCON ADVANCE [Concomitant]
     Active Substance: POTASSIUM BICARBONATE\SODIUM ALGINATE
     Indication: GASTRITIS
     Dosage: 30 ML (10 ML, 3 IN 1 D)
     Route: 048
     Dates: start: 20161205
  13. DOXAZOSIN [Concomitant]
     Active Substance: DOXAZOSIN\DOXAZOSIN MESYLATE
     Indication: HYPERTENSION
     Dosage: 2 MG ( 2 MG, 1 IN 1 D)
     Route: 048
     Dates: start: 201611
  14. TRIMOXAZOLE [Concomitant]
     Indication: ANTIBIOTIC PROPHYLAXIS
     Dosage: 180 MG (180 MG,1 IN 1 D)
     Route: 048
     Dates: start: 20161209

REACTIONS (1)
  - Hepatic failure [Fatal]

NARRATIVE: CASE EVENT DATE: 20170124
